FAERS Safety Report 8179965-0 (Version None)
Quarter: 2012Q1

REPORT INFORMATION
  Report Type: 
  Country: None (occurrence: None)
  Receive Date: 20120302
  Receipt Date: 20120229
  Transmission Date: 20120608
  Serious: Yes (Other)
  Sender: FDA-Public Use
  Company Number: US-JNJFOC-2009010590

PATIENT
  Sex: Female

DRUGS (3)
  1. BENADRYL [Suspect]
     Indication: PRODUCT USED FOR UNKNOWN INDICATION
     Dosage: DAILY DOSE TEXT: UNSPECIFIED
     Route: 048
  2. ORAL CONTRACEPTIVE UNSPECIFIED [Concomitant]
     Indication: CONTRACEPTION
     Dosage: DAILY DOSE TEXT: UNSPECIFIED
     Route: 048
  3. BENADRYL [Suspect]
     Route: 048

REACTIONS (3)
  - RESPIRATORY DISORDER [None]
  - SWELLING [None]
  - HYPERSENSITIVITY [None]
